FAERS Safety Report 17851469 (Version 1)
Quarter: 2020Q2

REPORT INFORMATION
  Report Type: Report from Study
  Country: None (occurrence: ES)
  Receive Date: 20200602
  Receipt Date: 20200602
  Transmission Date: 20200714
  Serious: Yes (Life-Threatening, Other)
  Sender: FDA-Public Use
  Company Number: ES-ABBVIE-20K-144-3424682-00

PATIENT
  Age: 29 Year
  Sex: Male

DRUGS (3)
  1. HUMIRA [Suspect]
     Active Substance: ADALIMUMAB
     Indication: PSORIATIC ARTHROPATHY
     Dosage: 49 MG  TO THE SUBCUTANEOUS SEMAGA
     Route: 058
     Dates: start: 20180731, end: 20181106
  2. ESOMEPRAZOL [Concomitant]
     Active Substance: ESOMEPRAZOLE
     Indication: ARTHRALGIA
     Dosage: ESOMEPRAZOL 20 MG 1 TABLET EVERY 12 HOURS, MODIFIED RELEASE TABLETS ORALLY
     Route: 048
     Dates: start: 20180404, end: 2020
  3. NAPROXENO [Concomitant]
     Active Substance: NAPROXEN
     Indication: ARTHRALGIA
     Dosage: NAPROXENO 500 MG 1 TABLET EVERY 12 HOURS, MODIFIED RELEASE TABLETS ORALLY
     Route: 048
     Dates: start: 20180404, end: 2020

REACTIONS (1)
  - Hodgkin^s disease [Not Recovered/Not Resolved]

NARRATIVE: CASE EVENT DATE: 20181106
